FAERS Safety Report 6147057-8 (Version None)
Quarter: 2009Q2

REPORT INFORMATION
  Report Type: 
  Country: None (occurrence: None)
  Receive Date: 20090402
  Receipt Date: 20090323
  Transmission Date: 20091009
  Serious: Yes (Hospitalization)
  Sender: FDA-Public Use
  Company Number: 1000000713

PATIENT
  Age: 86 Year
  Sex: Female

DRUGS (3)
  1. CITALOPRAM HYDROBROMIDE [Suspect]
     Dosage: ORAL
     Route: 048
     Dates: end: 20080401
  2. VASTAREL [Suspect]
     Dosage: ORAL
     Route: 048
     Dates: end: 20080401
  3. TIAPRIDAL [Suspect]
     Dosage: ORAL
     Route: 048
     Dates: end: 20080401

REACTIONS (3)
  - CEREBRAL ATROPHY [None]
  - FALL [None]
  - THROMBOCYTOPENIA [None]
